FAERS Safety Report 9256996 (Version 1)
Quarter: 2013Q2

REPORT INFORMATION
  Report Type: Spontaneous
  Country: GB (occurrence: GB)
  Receive Date: 20130426
  Receipt Date: 20130426
  Transmission Date: 20140414
  Serious: Yes (Life-Threatening)
  Sender: FDA-Public Use
  Company Number: GB-ELI_LILLY_AND_COMPANY-GB201303006043

PATIENT
  Age: 15 Year
  Sex: Female
  Weight: 45 kg

DRUGS (1)
  1. PROZAC [Suspect]
     Indication: ANOREXIA NERVOSA
     Dosage: 20 MG, QD
     Route: 048
     Dates: start: 201210

REACTIONS (1)
  - Neutropenia [Not Recovered/Not Resolved]
